FAERS Safety Report 8248224-X (Version None)
Quarter: 2012Q1

REPORT INFORMATION
  Report Type: 
  Country: None (occurrence: None)
  Receive Date: 20120330
  Receipt Date: 20120326
  Transmission Date: 20120608
  Serious: Yes (Life-Threatening, Hospitalization, Other)
  Sender: FDA-Public Use
  Company Number: CO-PFIZER INC-2012073427

PATIENT
  Age: 71 Year
  Sex: Male

DRUGS (10)
  1. METOPROLOL [Concomitant]
     Indication: HYPERTENSION
     Dosage: 100 MG, 1X/DAY
  2. CARBIDOPA + LEVODOPA [Concomitant]
     Dosage: 250/25MG, UNKNOWN FREQUENCY
  3. ENALAPRIL [Concomitant]
     Dosage: 20 MG, UNK
  4. OMEPRAZOLE [Concomitant]
     Dosage: 20 MG CAPSULE
  5. PHENYTOIN [Suspect]
     Indication: CONVULSION
     Dosage: 300 MG, 1X/DAY
     Route: 048
     Dates: start: 20120222, end: 20120306
  6. VANCOMYCIN [Concomitant]
     Dosage: 500 MG, 2X/DAY
     Dates: end: 20120304
  7. LEVOTHYROXINE [Concomitant]
     Dosage: 50 MG, UNK
  8. ATORVASTATIN CALCIUM [Suspect]
     Indication: HYPERLIPIDAEMIA
     Dosage: 40 MG, 1X/DAY
     Dates: end: 20120304
  9. BISACODYL [Concomitant]
     Dosage: 5 MG, 1X/DAY
  10. HEPARIN [Concomitant]
     Dosage: 60 MG /0.6 ML, UNSPECIFIED FREQUENCY

REACTIONS (3)
  - RASH [None]
  - RHABDOMYOLYSIS [None]
  - RENAL FAILURE ACUTE [None]
